FAERS Safety Report 19881967 (Version 1)
Quarter: 2021Q3

REPORT INFORMATION
  Report Type: Spontaneous
  Country: DE (occurrence: DE)
  Receive Date: 20210924
  Receipt Date: 20210924
  Transmission Date: 20211014
  Serious: Yes (Disabling)
  Sender: FDA-Public Use
  Company Number: DE-INCYTE CORPORATION-2021IN008577

PATIENT

DRUGS (11)
  1. JAKAVI [Suspect]
     Active Substance: RUXOLITINIB
     Dosage: 5 MG, Q12H
     Route: 048
     Dates: start: 202008
  2. BISOPROLOL?RATIOPHARM [Concomitant]
     Active Substance: BISOPROLOL
     Indication: ATRIAL FIBRILLATION
     Dosage: 1.25 MG, Q12H
     Route: 048
     Dates: start: 201905
  3. BISOPROLOL?RATIOPHARM [Concomitant]
     Active Substance: BISOPROLOL
     Indication: CEREBROVASCULAR ACCIDENT
  4. ELIQUIS [Concomitant]
     Active Substance: APIXABAN
     Indication: ATRIAL FIBRILLATION
  5. RAMIPRIL HEXAL [Concomitant]
     Active Substance: RAMIPRIL
     Indication: CEREBROVASCULAR ACCIDENT
  6. JAKAVI [Suspect]
     Active Substance: RUXOLITINIB
     Indication: PRODUCT USED FOR UNKNOWN INDICATION
     Dosage: 15 MG, (10 BZW. 15 MG /TAG)
     Route: 048
     Dates: start: 201910
  7. GRANUFINK [Concomitant]
     Indication: BENIGN PROSTATIC HYPERPLASIA
     Dosage: 1 DF, Q12H
     Route: 048
     Dates: start: 201901
  8. TAMSULOSIN [Concomitant]
     Active Substance: TAMSULOSIN
     Indication: BENIGN PROSTATIC HYPERPLASIA
     Dosage: 0.4 MG, QD
     Route: 048
     Dates: start: 201901
  9. ELIQUIS [Concomitant]
     Active Substance: APIXABAN
     Indication: CEREBROVASCULAR ACCIDENT
     Dosage: 5 MG, Q12H
     Route: 048
     Dates: start: 201905
  10. RAMIPRIL HEXAL [Concomitant]
     Active Substance: RAMIPRIL
     Indication: HYPERTENSION
     Dosage: 2.5 MG, QD
     Route: 048
     Dates: start: 201905
  11. SIMVASTATIN. [Concomitant]
     Active Substance: SIMVASTATIN
     Indication: CEREBROVASCULAR ACCIDENT
     Dosage: 40 MG, QD
     Route: 048
     Dates: start: 201905

REACTIONS (2)
  - Blood disorder [Not Recovered/Not Resolved]
  - Oxygen saturation decreased [Not Recovered/Not Resolved]

NARRATIVE: CASE EVENT DATE: 202001
